FAERS Safety Report 8490193-1 (Version None)
Quarter: 2012Q3

REPORT INFORMATION
  Report Type: 
  Country: None (occurrence: None)
  Receive Date: 20120705
  Receipt Date: 20110729
  Transmission Date: 20120928
  Serious: No
  Sender: FDA-Public Use
  Company Number: US-BAUSCH-2011BL005000

PATIENT
  Age: 59 Year
  Sex: Female

DRUGS (2)
  1. OPCON-A [Suspect]
     Indication: EYE SWELLING
     Route: 047
     Dates: start: 20110727, end: 20110727
  2. OPCON-A [Suspect]
     Indication: EYE PRURITUS
     Route: 047
     Dates: start: 20110727, end: 20110727

REACTIONS (5)
  - DRY EYE [None]
  - CONDITION AGGRAVATED [None]
  - PRURITUS GENERALISED [None]
  - EYE PRURITUS [None]
  - INSTILLATION SITE PAIN [None]
